FAERS Safety Report 18543144 (Version 2)
Quarter: 2021Q1

REPORT INFORMATION
  Report Type: Spontaneous
  Country: US (occurrence: US)
  Receive Date: 20201124
  Receipt Date: 20210104
  Transmission Date: 20210419
  Serious: Yes (Disabling, Other)
  Sender: FDA-Public Use
  Company Number: US-PURDUE-USA-2020-0163304

PATIENT
  Sex: Male

DRUGS (11)
  1. ROXICODONE [Suspect]
     Active Substance: OXYCODONE HYDROCHLORIDE
     Indication: PAIN MANAGEMENT
     Dosage: 5 MG
     Route: 065
  2. VICODIN [Suspect]
     Active Substance: ACETAMINOPHEN\HYDROCODONE BITARTRATE
     Indication: PAIN
     Dosage: 1?2 TABLET, Q4? 6H
     Route: 065
     Dates: start: 20151118
  3. OXYCONTIN [Suspect]
     Active Substance: OXYCODONE HYDROCHLORIDE
     Indication: PAIN MANAGEMENT
     Dosage: 10 MG
     Route: 048
     Dates: start: 2015
  4. OXYCODONE/ ACETAMINOPHEN TABLETS [Suspect]
     Active Substance: ACETAMINOPHEN\OXYCODONE HYDROCHLORIDE
     Dosage: 5?325 MG, (1 TABLET, Q4H)
     Route: 048
     Dates: start: 20180603
  5. PERCOCET                           /00446701/ [Suspect]
     Active Substance: ACETAMINOPHEN\OXYCODONE HYDROCHLORIDE\OXYCODONE TEREPHTHALATE
     Indication: PAIN MANAGEMENT
     Dosage: 1?2 TABLETS, Q4? 6H
     Route: 065
     Dates: start: 20151118
  6. PERCOCET                           /00446701/ [Suspect]
     Active Substance: ACETAMINOPHEN\OXYCODONE HYDROCHLORIDE\OXYCODONE TEREPHTHALATE
     Dosage: 1?2 TABLETS, Q4? 6H
     Route: 065
     Dates: start: 20170427
  7. OXYCODONE/ ACETAMINOPHEN TABLETS [Suspect]
     Active Substance: ACETAMINOPHEN\OXYCODONE HYDROCHLORIDE
     Dosage: 5?325MG, (1?2 TABLETS, Q4? 6H)
     Route: 048
     Dates: start: 20170427
  8. PERCOCET                           /00446701/ [Suspect]
     Active Substance: ACETAMINOPHEN\OXYCODONE HYDROCHLORIDE\OXYCODONE TEREPHTHALATE
     Dosage: 1 TABLET, Q4H
     Route: 065
     Dates: start: 20180603
  9. HYDROCODONE BITARTRATE/ACETAMINOPHEN [Suspect]
     Active Substance: ACETAMINOPHEN\HYDROCODONE BITARTRATE
     Indication: PAIN MANAGEMENT
     Dosage: 5?325MG, (1?2 TABLETS, Q4? 6H)
     Route: 048
     Dates: start: 20151118
  10. OXYCODONE/ ACETAMINOPHEN TABLETS [Suspect]
     Active Substance: ACETAMINOPHEN\OXYCODONE HYDROCHLORIDE
     Indication: PAIN MANAGEMENT
     Dosage: 5?325MG, (1?2 TABLETS, Q4? 6H)
     Route: 048
     Dates: start: 20151118
  11. OXYCODONE HCL TABLETS (RHODES 91?490) [Suspect]
     Active Substance: OXYCODONE HYDROCHLORIDE
     Indication: PAIN MANAGEMENT
     Dosage: 5 MG 1?2 TABLETS Q4H PRN
     Route: 048

REACTIONS (12)
  - Infected dermal cyst [Unknown]
  - Anxiety [Unknown]
  - Balance disorder [Unknown]
  - Swelling [Unknown]
  - Disability [Unknown]
  - Staphylococcal sepsis [Unknown]
  - Pain [Unknown]
  - Hallucination [Unknown]
  - Constipation [Unknown]
  - Clostridium difficile infection [Unknown]
  - Bacteraemia [Unknown]
  - Septic shock [Unknown]
